FAERS Safety Report 10062121 (Version 1)
Quarter: 2014Q2

REPORT INFORMATION
  Report Type: Report from Study
  Country: US (occurrence: US)
  Receive Date: 20140407
  Receipt Date: 20140407
  Transmission Date: 20141212
  Serious: No
  Sender: FDA-Public Use
  Company Number: US-ALEXION-A201400969

PATIENT
  Sex: 0

DRUGS (3)
  1. SOLIRIS [Suspect]
     Indication: PAROXYSMAL NOCTURNAL HAEMOGLOBINURIA
     Dosage: 900 MG, Q2W
     Route: 042
     Dates: start: 20100324
  2. FOLIC ACID [Concomitant]
     Indication: NUTRITIONAL SUPPLEMENTATION
     Dosage: UNK, QD
     Route: 065
     Dates: start: 20090101
  3. PROTONIX [Concomitant]
     Indication: ABDOMINAL PAIN
     Dosage: 40 MG, QD
     Route: 065
     Dates: start: 20090101

REACTIONS (1)
  - Influenza [Unknown]
